FAERS Safety Report 6829588-8 (Version None)
Quarter: 2010Q3

REPORT INFORMATION
  Report Type: 
  Country: None (occurrence: None)
  Receive Date: 20100709
  Receipt Date: 20070411
  Transmission Date: 20110219
  Serious: No
  Sender: FDA-Public Use
  Company Number: US-PFIZER INC-2007006277

PATIENT
  Sex: Female
  Weight: 82.55 kg

DRUGS (11)
  1. CHANTIX [Suspect]
     Indication: SMOKING CESSATION THERAPY
     Route: 048
     Dates: start: 20061201, end: 20070405
  2. CHANTIX [Suspect]
     Route: 048
  3. CHANTIX [Suspect]
     Route: 048
  4. ZOCOR [Concomitant]
  5. TAMSULOSIN HYDROCHLORIDE [Concomitant]
  6. CIMETIDINE [Concomitant]
  7. NEXIUM [Concomitant]
     Indication: EMERGENCY CARE
  8. TUMS [Concomitant]
  9. NICORETTE [Concomitant]
     Dosage: 3 PIECES A DAY
  10. VITAMINS [Concomitant]
  11. HYDROXYZINE PAMOATE [Concomitant]
     Indication: POLLAKIURIA

REACTIONS (7)
  - DRUG ABUSER [None]
  - ERUCTATION [None]
  - GASTROOESOPHAGEAL REFLUX DISEASE [None]
  - IRRITABILITY [None]
  - NAUSEA [None]
  - WEIGHT DECREASED [None]
  - WEIGHT INCREASED [None]
